FAERS Safety Report 20083343 (Version 1)
Quarter: 2021Q4

REPORT INFORMATION
  Report Type: Spontaneous
  Country: DE (occurrence: DE)
  Receive Date: 20211117
  Receipt Date: 20211117
  Transmission Date: 20220304
  Serious: Yes (Hospitalization)
  Sender: FDA-Public Use
  Company Number: DE-ADRED-07038-01

PATIENT
  Age: 64 Year
  Sex: Male
  Weight: 70 kg

DRUGS (10)
  1. APIXABAN [Suspect]
     Active Substance: APIXABAN
     Indication: Product used for unknown indication
     Dosage: 30 MILLIGRAM, QD 1-0-0-0
     Route: 065
  2. ASPIRIN [Concomitant]
     Active Substance: ASPIRIN
     Dosage: 100 MILLIGRAM,  1-0-0-0
     Route: 065
  3. MIRTAZAPINE [Concomitant]
     Active Substance: MIRTAZAPINE
     Dosage: 7.5 MG, 0-0-0-1
     Route: 065
  4. MACROGOL W/POTASSIUM CHLORIDE/SODIU/00747901/ [Concomitant]
     Dosage: UNK, BEDARF
     Route: 065
  5. METAMIZOL                          /06276701/ [Concomitant]
     Dosage: 30 GTT DROPS
     Route: 065
  6. BISOPROLOL [Concomitant]
     Active Substance: BISOPROLOL
     Dosage: 2.5 MG, 1-0-0-0
     Route: 065
  7. FENTANYL [Concomitant]
     Active Substance: FENTANYL
     Dosage: 200 MICROGRAM, BEDARF
     Route: 065
  8. FENTANYL [Concomitant]
     Active Substance: FENTANYL
     Dosage: 100 MICROGRAM SCHEMA
     Route: 065
  9. PREGABALIN [Concomitant]
     Active Substance: PREGABALIN
     Dosage: 20 MILLIGRAM PER MILLILITRE, 2.5-2.5-2.5-0
     Route: 065
  10. POTASSIUM CITRATE [Concomitant]
     Active Substance: POTASSIUM CITRATE
     Dosage: 20 MMOL, 1-0-1-0   , BID
     Route: 065

REACTIONS (11)
  - Dyspnoea [Recovering/Resolving]
  - Electrocardiogram abnormal [Recovering/Resolving]
  - Tachypnoea [Recovering/Resolving]
  - Tachycardia [Recovering/Resolving]
  - Cold sweat [Recovering/Resolving]
  - General physical health deterioration [Recovering/Resolving]
  - Condition aggravated [Recovering/Resolving]
  - Hypotension [Recovering/Resolving]
  - Atrial fibrillation [Recovering/Resolving]
  - Respiratory tract haemorrhage [Recovering/Resolving]
  - Anaemia [Recovering/Resolving]
